FAERS Safety Report 4974445-5 (Version None)
Quarter: 2006Q2

REPORT INFORMATION
  Report Type: 
  Country: None (occurrence: None)
  Receive Date: 20060410
  Receipt Date: 20060328
  Transmission Date: 20061013
  Serious: Yes (Hospitalization, Other)
  Sender: FDA-Public Use
  Company Number: HQWYE1669006MAR06

PATIENT
  Age: 43 Year
  Sex: Female

DRUGS (2)
  1. LEVONORGESTREL AND ETHINYL ESTRADIOL [Suspect]
     Indication: OVARIAN FAILURE
     Dosage: 1 TABLET 1X PER 1 DAY
     Route: 048
     Dates: start: 20060205, end: 20060225
  2. OLMETEC (OLMESARTAN MEDOXOMIL) [Concomitant]

REACTIONS (9)
  - ALANINE AMINOTRANSFERASE INCREASED [None]
  - ASPARTATE AMINOTRANSFERASE INCREASED [None]
  - BLOOD ALKALINE PHOSPHATASE INCREASED [None]
  - BLOOD BILIRUBIN INCREASED [None]
  - BLOOD LACTATE DEHYDROGENASE INCREASED [None]
  - GAMMA-GLUTAMYLTRANSFERASE INCREASED [None]
  - HAEMATOCRIT DECREASED [None]
  - HEPATIC FUNCTION ABNORMAL [None]
  - PLATELET COUNT DECREASED [None]
